FAERS Safety Report 4632906-2 (Version None)
Quarter: 2005Q2

REPORT INFORMATION
  Report Type: 
  Country: None (occurrence: None)
  Receive Date: 20050411
  Receipt Date: 20050411
  Transmission Date: 20051028
  Serious: No
  Sender: FDA-Public Use
  Company Number: None

PATIENT
  Sex: Male
  Weight: 133 kg

DRUGS (5)
  1. CISPLATIN [Suspect]
     Indication: SMALL CELL LUNG CANCER STAGE UNSPECIFIED
     Dosage: 30 MG/M2, IV DAY 1,8,22,29 (2 CYCLES OF 21 DAYS)
     Route: 042
     Dates: start: 20050112
  2. IRINOTECAN HCL [Suspect]
     Dosage: 65 MG/M2 DAYS 1,8,22,29, (2 CYCLES OF 21 DAYS)
  3. CARBOPLATIN [Suspect]
     Dosage: AUC 5 IV ON DAYS 43, 64, 85 (THIS IS CYCLE 3, 4, 5)
     Route: 042
  4. ETOPOSIDE [Suspect]
     Dosage: 100 MG/M2 IV DAYS 43-45, 64-66, 85-87
     Route: 042
  5. XRT [Suspect]
     Dosage: 5 FRACTIONS/WEEKS STARTING DAY 43 TO 7000 CGY

REACTIONS (4)
  - FEBRILE NEUTROPENIA [None]
  - HAEMOGLOBIN DECREASED [None]
  - PLATELET COUNT DECREASED [None]
  - WHITE BLOOD CELL COUNT DECREASED [None]
